FAERS Safety Report 9467247 (Version 3)
Quarter: 2013Q4

REPORT INFORMATION
  Report Type: Report from Study
  Country: DE (occurrence: DE)
  Receive Date: 20130821
  Receipt Date: 20131028
  Transmission Date: 20140711
  Serious: Yes (Hospitalization, Other)
  Sender: FDA-Public Use
  Company Number: DE-BIOGENIDEC-2013BI075558

PATIENT
  Age: 49 Year
  Sex: Male

DRUGS (7)
  1. TYSABRI [Suspect]
     Indication: MULTIPLE SCLEROSIS
     Route: 042
     Dates: start: 20130104
  2. FAMPYRA [Concomitant]
     Indication: GAIT DISTURBANCE
     Route: 048
     Dates: start: 20120424
  3. LYRICA [Concomitant]
     Indication: NEURALGIA
     Dates: start: 20120110
  4. GABAPENTIN [Concomitant]
     Indication: NEURALGIA
     Dates: start: 20110316
  5. DOXEPIN [Concomitant]
     Indication: DEPRESSION
     Dates: start: 19940101
  6. DULOXETIN [Concomitant]
     Indication: DEPRESSION
     Dates: start: 20120808
  7. TOLPERISON [Concomitant]
     Indication: MUSCLE SPASTICITY
     Dates: start: 20120619

REACTIONS (2)
  - Cystitis [Recovered/Resolved]
  - Septic encephalopathy [Unknown]
